FAERS Safety Report 5275059-2 (Version None)
Quarter: 2007Q1

REPORT INFORMATION
  Report Type: 
  Country: None (occurrence: None)
  Receive Date: 20070326
  Receipt Date: 20070314
  Transmission Date: 20070707
  Serious: Yes (Hospitalization)
  Sender: FDA-Public Use
  Company Number: JP-JNJFOC-20060200941

PATIENT
  Sex: Female
  Weight: 42 kg

DRUGS (8)
  1. REMICADE [Suspect]
     Route: 042
  2. REMICADE [Suspect]
     Indication: RHEUMATOID ARTHRITIS
     Route: 042
  3. RHEUMATREX [Suspect]
     Indication: RHEUMATOID ARTHRITIS
     Route: 048
  4. SELBEX [Suspect]
     Indication: GASTRITIS PROPHYLAXIS
     Route: 048
  5. VOLTAREN [Suspect]
     Indication: RHEUMATOID ARTHRITIS
     Route: 048
  6. JUVELA N [Suspect]
     Indication: PERIPHERAL CIRCULATORY FAILURE
     Route: 048
  7. PREDNISOLONE [Suspect]
     Indication: RHEUMATOID ARTHRITIS
     Route: 048
  8. PARIET [Suspect]
     Indication: GASTRITIS PROPHYLAXIS
     Route: 048

REACTIONS (1)
  - MYCOBACTERIAL INFECTION [None]
